FAERS Safety Report 6156424-8 (Version None)
Quarter: 2009Q2

REPORT INFORMATION
  Report Type: 
  Country: None (occurrence: None)
  Receive Date: 20090416
  Receipt Date: 20090408
  Transmission Date: 20091009
  Serious: Yes (Death, Hospitalization, Other)
  Sender: FDA-Public Use
  Company Number: AR-SANOFI-SYNTHELABO-D01200508122

PATIENT
  Sex: Male
  Weight: 65 kg

DRUGS (4)
  1. ATENOLOL [Concomitant]
  2. DIGOXIN [Concomitant]
  3. ASPIRIN [Concomitant]
     Indication: ATRIAL FIBRILLATION
     Dosage: 100 MG
     Route: 048
     Dates: start: 20050305
  4. CLOPIDOGREL [Suspect]
     Indication: ATRIAL FIBRILLATION
     Route: 048
     Dates: start: 20050305

REACTIONS (4)
  - HYPONATRAEMIA [None]
  - MYELODYSPLASTIC SYNDROME [None]
  - NON-HODGKIN'S LYMPHOMA [None]
  - PNEUMONIA [None]
